FAERS Safety Report 21010648 (Version 1)
Quarter: 2022Q2

REPORT INFORMATION
  Report Type: Spontaneous
  Country: US (occurrence: US)
  Receive Date: 20220627
  Receipt Date: 20220627
  Transmission Date: 20220721
  Serious: Yes (Hospitalization, Other)
  Sender: FDA-Public Use
  Company Number: US-ORGANON-O2206USA002308

PATIENT
  Age: 69 Year
  Sex: Male

DRUGS (7)
  1. SINEMET [Suspect]
     Active Substance: CARBIDOPA\LEVODOPA
     Indication: Product used for unknown indication
     Dosage: UNK
     Route: 048
  2. DUOPA [Suspect]
     Active Substance: CARBIDOPA\LEVODOPA
     Indication: Product used for unknown indication
     Dosage: UNK
     Dates: start: 20151015
  3. VITAMIN B6 [Concomitant]
     Active Substance: PYRIDOXINE HYDROCHLORIDE
     Indication: Product used for unknown indication
     Dosage: 25 MILLIGRAM (MG)
     Route: 048
  4. TRAZODONE [Concomitant]
     Active Substance: TRAZODONE HYDROCHLORIDE
     Indication: Product used for unknown indication
     Dosage: 50 MILLIGRAM (MG)
     Route: 048
  5. DULOXETINE [Concomitant]
     Active Substance: DULOXETINE
     Indication: Product used for unknown indication
     Dosage: 60 MILLIGRAM (MG)
     Route: 048
  6. CYANOCOBALAMIN [Concomitant]
     Active Substance: CYANOCOBALAMIN
     Indication: Product used for unknown indication
     Dosage: 1000 MICROGRAM (MG)
     Route: 048
  7. RIVASTIGMINE [Concomitant]
     Active Substance: RIVASTIGMINE
     Indication: Product used for unknown indication
     Dosage: 9.5 MILLIGRAM (MG)
     Route: 048

REACTIONS (6)
  - Device dislocation [Unknown]
  - Embedded device [Unknown]
  - Fall [Unknown]
  - Gastritis [Unknown]
  - Condition aggravated [Unknown]
  - Unevaluable event [Unknown]

NARRATIVE: CASE EVENT DATE: 20220526
